FAERS Safety Report 18285757 (Version 1)
Quarter: 2020Q3

REPORT INFORMATION
  Report Type: Spontaneous
  Country: US (occurrence: US)
  Receive Date: 20200919
  Receipt Date: 20200919
  Transmission Date: 20201103
  Serious: Yes (Other)
  Sender: FDA-Public Use
  Company Number: US-ACCORD-201774

PATIENT
  Age: 82 Year
  Sex: Male

DRUGS (2)
  1. BICALUTAMIDE. [Suspect]
     Active Substance: BICALUTAMIDE
     Indication: ADENOCARCINOMA
     Route: 048
  2. DEGARELIX [Concomitant]
     Active Substance: DEGARELIX
     Indication: ADENOCARCINOMA

REACTIONS (4)
  - Sexual dysfunction [Recovering/Resolving]
  - Loss of libido [Recovering/Resolving]
  - Hot flush [Unknown]
  - Erectile dysfunction [Recovering/Resolving]
